FAERS Safety Report 7222912-6 (Version None)
Quarter: 2011Q1

REPORT INFORMATION
  Report Type: 
  Country: None (occurrence: None)
  Receive Date: 20110106
  Receipt Date: 20110106
  Transmission Date: 20110831
  Serious: Yes (Hospitalization)
  Sender: FDA-Public Use
  Company Number: None

PATIENT
  Age: 69 Year
  Sex: Male
  Weight: 54.4 kg

DRUGS (15)
  1. METOPROLOL [Concomitant]
  2. AMLODIPINE [Concomitant]
  3. CLONAZEPAM [Concomitant]
  4. SIMVASTATIN [Concomitant]
  5. PROVENTIL [Concomitant]
  6. COMPAZINE [Concomitant]
  7. CENTRUM SILVER [Concomitant]
  8. VIT E [Concomitant]
  9. PREVACID [Concomitant]
  10. ERBITUX [Suspect]
     Indication: LARYNGEAL CANCER
     Dosage: {50MG ONCE IV (RECENT)
     Route: 042
  11. ERBITUX [Suspect]
     Indication: METASTASIS
     Dosage: {50MG ONCE IV (RECENT)
     Route: 042
  12. FLOMAX [Concomitant]
  13. VIT C [Concomitant]
  14. MEGACE [Concomitant]
  15. OXYCODONE HCL [Concomitant]

REACTIONS (3)
  - CARDIAC ARREST [None]
  - ANAPHYLACTIC REACTION [None]
  - PULSELESS ELECTRICAL ACTIVITY [None]
